FAERS Safety Report 5887650-0 (Version None)
Quarter: 2008Q3

REPORT INFORMATION
  Report Type: 
  Country: None (occurrence: None)
  Receive Date: 20080916
  Receipt Date: 20080904
  Transmission Date: 20090109
  Serious: Yes (Hospitalization)
  Sender: FDA-Public Use
  Company Number: GP-08-09-0002

PATIENT
  Age: 55 Year
  Sex: Female

DRUGS (4)
  1. GABAPENTIN TABLETS, UNK, UNK [Suspect]
     Dosage: 900 MG/DAY, P.O.
  2. VANCOMYCIN HYDROCHLORIDE [Concomitant]
  3. MERONEME [Concomitant]
  4. AMIKLIN [Concomitant]

REACTIONS (3)
  - CHOLESTASIS [None]
  - CYTOLYTIC HEPATITIS [None]
  - DRUG RASH WITH EOSINOPHILIA AND SYSTEMIC SYMPTOMS [None]
